FAERS Safety Report 9715822 (Version 2)
Quarter: 2013Q4

REPORT INFORMATION
  Report Type: Report from Study
  Country: US (occurrence: US)
  Receive Date: 20131127
  Receipt Date: 20131206
  Transmission Date: 20140711
  Serious: Yes (Death)
  Sender: FDA-Public Use
  Company Number: US-PFIZER INC-2013334595

PATIENT
  Age: 74 Year
  Sex: Male
  Weight: 74 kg

DRUGS (6)
  1. BLINDED CELECOXIB [Suspect]
     Indication: ADENOCARCINOMA OF COLON
     Dosage: QD STARTING ON DAY 1 OF CYCLE 2 OF FOLFOX ONTINUED TO 3 YEARS
     Route: 048
     Dates: start: 20131030
  2. BLINDED PLACEBO [Suspect]
     Indication: ADENOCARCINOMA OF COLON
     Dosage: QD STARTING ON DAY 1 OF CYCLE 2 OF FOLFOX ONTINUED TO 3 YEARS
     Route: 048
     Dates: start: 20131030
  3. FLUOROURACIL [Suspect]
     Indication: ADENOCARCINOMA OF COLON
     Dosage: 400 MG/M2 ON DAY 1
     Route: 042
     Dates: start: 20131016
  4. FLUOROURACIL [Suspect]
     Dosage: 2400 MG/M2 46-48 HOURS ON DAY 1
     Route: 042
     Dates: start: 20131016
  5. LEUCOVORIN CALCIUM [Suspect]
     Indication: ADENOCARCINOMA OF COLON
     Dosage: 400 MG/M2, OVER 2 HOURS ON DAY 1
     Route: 042
     Dates: start: 20131016
  6. ELOXATIN [Suspect]
     Indication: ADENOCARCINOMA OF COLON
     Dosage: 85 MG/M2, OVER 2 HOURS ON DAY 1
     Route: 042
     Dates: start: 20131016

REACTIONS (1)
  - Cardiac arrest [Fatal]
